FAERS Safety Report 9476733 (Version 2)
Quarter: 2013Q3

REPORT INFORMATION
  Report Type: Spontaneous
  Country: US (occurrence: US)
  Receive Date: 20130826
  Receipt Date: 20130826
  Transmission Date: 20140515
  Serious: No
  Sender: FDA-Public Use
  Company Number: US-BRISTOL-MYERS SQUIBB COMPANY-17427634

PATIENT
  Age: 46 Year
  Sex: Male
  Weight: 97.5 kg

DRUGS (4)
  1. KENALOG-40 INJ [Suspect]
     Indication: HYPERSENSITIVITY
     Dosage: 1 DF: 1 ML WITH NORMAL SALINE FOR A 3:1 OR 4:1 RATIO?200 MG/5 ML VIAL:JUN 2014,NDC:0003-0293-20
     Route: 023
  2. KENALOG-40 INJ [Suspect]
     Indication: ALOPECIA
     Dosage: 1 DF: 1 ML WITH NORMAL SALINE FOR A 3:1 OR 4:1 RATIO?200 MG/5 ML VIAL:JUN 2014,NDC:0003-0293-20
     Route: 023
  3. KENALOG-40 INJ [Suspect]
     Indication: ECZEMA
     Dosage: 1 DF: 1 ML WITH NORMAL SALINE FOR A 3:1 OR 4:1 RATIO?200 MG/5 ML VIAL:JUN 2014,NDC:0003-0293-20
     Route: 023
  4. KENALOG-40 INJ [Suspect]
     Indication: DRY SKIN
     Dosage: 1 DF: 1 ML WITH NORMAL SALINE FOR A 3:1 OR 4:1 RATIO?200 MG/5 ML VIAL:JUN 2014,NDC:0003-0293-20
     Route: 023

REACTIONS (9)
  - Drug ineffective [Unknown]
  - Depression [Unknown]
  - Feeling abnormal [Unknown]
  - Drug administration error [Unknown]
  - Pruritus [Unknown]
  - Anxiety [Unknown]
  - Night sweats [Unknown]
  - Palpitations [Unknown]
  - Alopecia [Unknown]
